FAERS Safety Report 10038975 (Version 1)
Quarter: 2014Q1

REPORT INFORMATION
  Report Type: Spontaneous
  Country: US (occurrence: US)
  Receive Date: 20140326
  Receipt Date: 20140326
  Transmission Date: 20141002
  Serious: Yes (Other)
  Sender: FDA-Public Use
  Company Number: US-TEVA-471329USA

PATIENT
  Age: 27 Year
  Sex: Female
  Weight: 54.93 kg

DRUGS (1)
  1. PARAGARD 380A [Suspect]
     Indication: CONTRACEPTION
     Route: 015
     Dates: start: 20121013, end: 20140322

REACTIONS (3)
  - Device dislocation [Recovered/Resolved]
  - Metrorrhagia [Unknown]
  - Pelvic pain [Unknown]
